FAERS Safety Report 7395030-4 (Version None)
Quarter: 2011Q2

REPORT INFORMATION
  Report Type: 
  Country: None (occurrence: None)
  Receive Date: 20110405
  Receipt Date: 20110328
  Transmission Date: 20111010
  Serious: Yes (Other)
  Sender: FDA-Public Use
  Company Number: US-SHIRE-ALL1-2011-00873

PATIENT
  Sex: Female
  Weight: 99.773 kg

DRUGS (4)
  1. LIALDA [Suspect]
     Indication: COLITIS ULCERATIVE
     Dosage: 4.8 G, 1X/DAY:Q TAKEN AS 4(1.2 G TABLETS)
     Route: 048
     Dates: start: 20090101, end: 20110101
  2. LOVASTATIN [Concomitant]
     Indication: BLOOD CHOLESTEROL INCREASED
     Dosage: 40 MG, 1X/DAY:QD
     Route: 048
  3. LIALDA [Suspect]
     Dosage: 4.8 G, 1X/DAY:QD TAKEN AS 4 (1.2 G TABLETS)
     Route: 048
     Dates: start: 20110116, end: 20110214
  4. LOVAZA [Concomitant]
     Indication: BLOOD TRIGLYCERIDES INCREASED
     Dosage: 1 G, 2X/DAY:BID
     Route: 048
     Dates: start: 20080101

REACTIONS (6)
  - INFLUENZA LIKE ILLNESS [None]
  - GASTROOESOPHAGEAL REFLUX DISEASE [None]
  - BACK DISORDER [None]
  - HYPOTHYROIDISM [None]
  - BLOOD PRESSURE FLUCTUATION [None]
  - PALPITATIONS [None]
